FAERS Safety Report 7096334-5 (Version None)
Quarter: 2010Q4

REPORT INFORMATION
  Report Type: 
  Country: None (occurrence: None)
  Receive Date: 20101111
  Receipt Date: 20090810
  Transmission Date: 20110411
  Serious: Yes (Other)
  Sender: FDA-Public Use
  Company Number: US-KINGPHARMUSA00001-K200900960

PATIENT
  Sex: Female
  Weight: 113.38 kg

DRUGS (3)
  1. AVINZA [Suspect]
     Indication: SPINAL OSTEOARTHRITIS
     Dosage: ^100 MG^, QD
     Route: 048
  2. AVINZA [Suspect]
     Dosage: 120 MG, BID
     Route: 048
  3. CYMBALTA [Suspect]
     Indication: NEUROPATHY PERIPHERAL
     Dosage: UNK, QD
     Route: 048

REACTIONS (13)
  - ABDOMINAL DISCOMFORT [None]
  - DIARRHOEA [None]
  - DRUG DEPENDENCE [None]
  - DRUG EFFECT DECREASED [None]
  - DYSPHONIA [None]
  - EUPHORIC MOOD [None]
  - INFLUENZA [None]
  - NERVOUSNESS [None]
  - STRESS [None]
  - TREMOR [None]
  - VOMITING [None]
  - WEIGHT INCREASED [None]
  - WITHDRAWAL SYNDROME [None]
